FAERS Safety Report 25324443 (Version 1)
Quarter: 2025Q2

REPORT INFORMATION
  Report Type: Spontaneous
  Country: JP (occurrence: JP)
  Receive Date: 20250516
  Receipt Date: 20250516
  Transmission Date: 20250717
  Serious: Yes (Hospitalization)
  Sender: SUNOVION
  Company Number: JP-SUMITOMO PHARMA SWITZERLAND GMBH-2025SPA004440

PATIENT

DRUGS (3)
  1. VIBEGRON [Suspect]
     Active Substance: VIBEGRON
     Indication: Hypertonic bladder
     Route: 048
     Dates: start: 2021
  2. IMIDAFENACIN [Suspect]
     Active Substance: IMIDAFENACIN
     Indication: Product used for unknown indication
     Dosage: 0.2 MG, QD
     Route: 048
     Dates: start: 2021
  3. SILODOSIN [Suspect]
     Active Substance: SILODOSIN
     Indication: Product used for unknown indication
     Dosage: 8 MG, QD
     Route: 048
     Dates: start: 2021

REACTIONS (3)
  - Cerebral infarction [Recovered/Resolved with Sequelae]
  - Residual urine volume increased [Recovered/Resolved]
  - Urinary retention [Recovered/Resolved]

NARRATIVE: CASE EVENT DATE: 20250228
